FAERS Safety Report 5248713-6 (Version None)
Quarter: 2007Q1

REPORT INFORMATION
  Report Type: 
  Country: None (occurrence: None)
  Receive Date: 20070222
  Receipt Date: 20031115
  Transmission Date: 20070707
  Serious: Yes (Hospitalization)
  Sender: FDA-Public Use
  Company Number: GXKR2003US00589

PATIENT
  Age: 51 Year
  Sex: Female

DRUGS (5)
  1. ATORVASTATIN CALCIUM [Suspect]
     Indication: HYPERLIPIDAEMIA
     Dosage: 10 MG
  2. CLARITHROMYCIN [Suspect]
     Indication: RESPIRATORY TRACT INFECTION
     Dosage: 500 MG, BID
  3. ESOMEPRAZOLE MAGNESIUM [Suspect]
     Indication: ABDOMINAL PAIN UPPER
     Dosage: 20 MG
  4. CONJUGATED OESTROGEN (CONJIGATED OESTROGEN) [Concomitant]
  5. FAMOTIDINE [Concomitant]

REACTIONS (7)
  - ATRIOVENTRICULAR BLOCK COMPLETE [None]
  - BLOOD CREATINE PHOSPHOKINASE MB INCREASED [None]
  - CHEST PAIN [None]
  - DRUG INTERACTION [None]
  - DRUG TOXICITY [None]
  - MYOSITIS [None]
  - RHABDOMYOLYSIS [None]
